FAERS Safety Report 7387474-1 (Version None)
Quarter: 2011Q1

REPORT INFORMATION
  Report Type: 
  Country: None (occurrence: None)
  Receive Date: 20110331
  Receipt Date: 20110325
  Transmission Date: 20110831
  Serious: Yes (Other)
  Sender: FDA-Public Use
  Company Number: CHPA2011US04512

PATIENT
  Age: 24 Month
  Sex: Male

DRUGS (1)
  1. THERAFLU VAPOR PATCH [Suspect]
     Dosage: UNK, UNK
     Route: 048

REACTIONS (3)
  - ACCIDENTAL EXPOSURE [None]
  - ACCIDENTAL DRUG INTAKE BY CHILD [None]
  - CONVULSION [None]
